FAERS Safety Report 4804498-6 (Version None)
Quarter: 2005Q4

REPORT INFORMATION
  Report Type: 
  Country: None (occurrence: None)
  Receive Date: 20051018
  Receipt Date: 20051018
  Transmission Date: 20060501
  Serious: No
  Sender: FDA-Public Use
  Company Number: None

PATIENT
  Age: 13 Year
  Sex: Male
  Weight: 41.2773 kg

DRUGS (10)
  1. PROMETHAZINE [Suspect]
     Indication: ABDOMINAL PAIN
     Dosage: 6.25MG ONCE IV
     Route: 042
     Dates: start: 20051012, end: 20051012
  2. PROMETHAZINE [Suspect]
     Indication: NAUSEA
     Dosage: 6.25MG ONCE IV
     Route: 042
     Dates: start: 20051012, end: 20051012
  3. NORMAL SALINE [Concomitant]
  4. TORADOL [Concomitant]
  5. ANCEF [Concomitant]
  6. FLAGYL [Concomitant]
  7. ROCURONIUM [Concomitant]
  8. VERSED [Concomitant]
  9. FENTANYL [Concomitant]
  10. PROPOFOL [Concomitant]

REACTIONS (1)
  - BODY TEMPERATURE INCREASED [None]
